FAERS Safety Report 11885375 (Version 4)
Quarter: 2016Q1

REPORT INFORMATION
  Report Type: Spontaneous
  Country: US (occurrence: US)
  Receive Date: 20160104
  Receipt Date: 20160226
  Transmission Date: 20160526
  Serious: Yes (Other)
  Sender: FDA-Public Use
  Company Number: US-BAYER-2016-000255

PATIENT
  Age: 34 Year
  Sex: Female
  Weight: 93.88 kg

DRUGS (20)
  1. MIRENA [Suspect]
     Active Substance: LEVONORGESTREL
     Indication: ENDOMETRIOSIS
  2. M-M-R II [Concomitant]
     Active Substance: MEASLES VIRUS STRAIN ENDERS^ ATTENUATED EDMONSTON LIVE ANTIGEN\MUMPS VIRUS STRAIN B LEVEL JERYL LYNN LIVE ANTIGEN\RUBELLA VIRUS STRAIN WISTAR RA 27/3 LIVE ANTIGEN
     Dosage: UNK
     Dates: start: 20141016
  3. METHYLPREDNISOLONE [METHYLPREDNISOLONE ACETATE] [Concomitant]
  4. ONDANSETRON [Concomitant]
     Active Substance: ONDANSETRON
     Dosage: 4 MG/2ML, UNK
     Dates: start: 20141003
  5. SIMPONI [Concomitant]
     Active Substance: GOLIMUMAB
     Dosage: 1 SYRINGE UNDER SKIN 1 TIME A MONTH
  6. KETOROLAC [Concomitant]
     Active Substance: KETOROLAC\KETOROLAC TROMETHAMINE
     Dosage: 30 MG/ML, UNK
     Dates: start: 20141003
  7. PROTONIX [Concomitant]
     Active Substance: PANTOPRAZOLE SODIUM
     Dosage: 1 DF, QD
     Route: 048
  8. DOVONEX [Concomitant]
     Active Substance: CALCIPOTRIENE
     Dosage: UNK, BID
     Route: 061
  9. CELEBREX [Concomitant]
     Active Substance: CELECOXIB
     Indication: PAIN
     Dosage: 1 DF, BID AS NEEDED
     Route: 048
  10. METHOTREXATE [METHOTREXATE] [Concomitant]
     Active Substance: METHOTREXATE
     Dosage: 5 DF, OW
     Route: 048
  11. DERMAZINC [PYRITHIONE ZINC] [Concomitant]
     Dosage: UNK UNK, BIW UPTO 3 WEEKS, AS NEEDED
     Route: 061
  12. SALICYLIC ACID [SALICYLIC ACID] [Concomitant]
     Route: 061
  13. TYLENOL [Concomitant]
     Active Substance: ACETAMINOPHEN
     Dosage: 1000 MG, PRN
     Route: 048
  14. MIRENA [Suspect]
     Active Substance: LEVONORGESTREL
     Indication: CONTRACEPTION
     Dosage: 20 MCG/24HR, CONT
     Route: 015
     Dates: start: 20140218, end: 20151231
  15. INFLUENZA VACCIN [Concomitant]
     Active Substance: INFLUENZA VIRUS VACCINE
     Dosage: UNK
     Dates: start: 20141007
  16. INFLUENZA VACCIN [Concomitant]
     Active Substance: INFLUENZA VIRUS VACCINE
     Dosage: UNK
     Dates: start: 20151005
  17. LUTERA [Concomitant]
     Active Substance: ETHINYL ESTRADIOL\LEVONORGESTREL
     Dosage: 1 DF, QD
     Route: 048
  18. FOLIC ACID. [Concomitant]
     Active Substance: FOLIC ACID
     Dosage: 1 DF, QD
     Route: 048
  19. DIPROSONE [Concomitant]
     Active Substance: BETAMETHASONE DIPROPIONATE
     Dosage: UNK UNK, BID
  20. MAXALT [Concomitant]
     Active Substance: RIZATRIPTAN BENZOATE
     Indication: HEADACHE
     Dosage: TOOK AT ONSET OF HEADACHE, 1 DF PER DAY PRN, LIMIT 2 PER DAY, MAX 6 DF PER WEEK

REACTIONS (10)
  - Embedded device [Recovered/Resolved]
  - Fibrocystic breast disease [None]
  - Dyspareunia [None]
  - Abdominal pain [Recovered/Resolved]
  - Vision blurred [None]
  - Skin lesion [None]
  - Migraine without aura [None]
  - Off label use of device [None]
  - Genital haemorrhage [Recovered/Resolved]
  - Device difficult to use [None]

NARRATIVE: CASE EVENT DATE: 20140218
